FAERS Safety Report 10846388 (Version 2)
Quarter: 2015Q2

REPORT INFORMATION
  Report Type: Report from Study
  Country: US (occurrence: US)
  Receive Date: 20150220
  Receipt Date: 20150424
  Transmission Date: 20150821
  Serious: Yes (Hospitalization)
  Sender: FDA-Public Use
  Company Number: US-ABBVIE-15K-163-1347580-00

PATIENT
  Age: 58 Year
  Sex: Female
  Weight: 115.3 kg

DRUGS (2)
  1. HUMIRA [Suspect]
     Active Substance: ADALIMUMAB
     Indication: CROHN^S DISEASE
     Dosage: 4 PENS-INITIAL DOSE
     Route: 065
     Dates: start: 20150205, end: 20150205
  2. LIPITOR [Concomitant]
     Active Substance: ATORVASTATIN CALCIUM
     Indication: PRODUCT USED FOR UNKNOWN INDICATION

REACTIONS (2)
  - Infusion site phlebitis [Unknown]
  - Palpitations [Unknown]

NARRATIVE: CASE EVENT DATE: 201502
